FAERS Safety Report 19054473 (Version 1)
Quarter: 2021Q1

REPORT INFORMATION
  Report Type: Report from Study
  Country: EC (occurrence: EC)
  Receive Date: 20210325
  Receipt Date: 20210325
  Transmission Date: 20210420
  Serious: Yes (Hospitalization, Other)
  Sender: FDA-Public Use
  Company Number: NVSC2020EC283012

PATIENT
  Age: 55 Year
  Sex: Female

DRUGS (2)
  1. TASIGNA [Suspect]
     Active Substance: NILOTINIB
     Dosage: 600 MG, QD (400 MG IN THE MORNING AND 200 MG IN THE NIGHT)
     Route: 048
     Dates: start: 20201124, end: 20210122
  2. TASIGNA [Suspect]
     Active Substance: NILOTINIB
     Indication: CHRONIC MYELOID LEUKAEMIA
     Dosage: 200 MG, BID
     Route: 048
     Dates: start: 20200914, end: 20201123

REACTIONS (6)
  - Respiratory depression [Not Recovered/Not Resolved]
  - Yellow skin [Unknown]
  - Headache [Recovering/Resolving]
  - Drug ineffective [Unknown]
  - Vomiting [Recovered/Resolved]
  - Memory impairment [Unknown]

NARRATIVE: CASE EVENT DATE: 202009
